FAERS Safety Report 7625458-6 (Version None)
Quarter: 2011Q3

REPORT INFORMATION
  Report Type: 
  Country: None (occurrence: None)
  Receive Date: 20110713
  Receipt Date: 20110628
  Transmission Date: 20111222
  Serious: Yes (Hospitalization, Other)
  Sender: FDA-Public Use
  Company Number: 2011MA008260

PATIENT
  Age: 11 Month
  Sex: Male
  Weight: 10 kg

DRUGS (2)
  1. CLARITHROMYCIN [Suspect]
     Indication: UPPER RESPIRATORY TRACT INFECTION
     Dosage: 15 MG/KG;QD
  2. FEVERALL [Suspect]
     Indication: PYREXIA
     Dosage: 125 MG;Q6;RTL
     Route: 054

REACTIONS (2)
  - HEPATITIS FULMINANT [None]
  - LIVER INJURY [None]
